FAERS Safety Report 9409501 (Version 1)
Quarter: 2013Q3

REPORT INFORMATION
  Report Type: Spontaneous
  Country: FR (occurrence: FR)
  Receive Date: 20130719
  Receipt Date: 20130719
  Transmission Date: 20140515
  Serious: Yes (Hospitalization)
  Sender: FDA-Public Use
  Company Number: FR-PFIZER INC-2013206955

PATIENT
  Age: 56 Year
  Sex: Male

DRUGS (6)
  1. PARACETAMOL [Concomitant]
     Indication: SEPTIC SHOCK
     Dosage: UNK
     Route: 048
     Dates: start: 20130606, end: 20130619
  2. FLUIMUCIL [Concomitant]
     Dosage: UNK
     Dates: start: 201306
  3. TAZOCILLINE [Suspect]
     Indication: SEPTIC SHOCK
     Dosage: UNK
     Route: 041
     Dates: start: 20130609, end: 20130613
  4. TAZOCILLINE [Suspect]
     Dosage: UNK
     Dates: start: 20130616, end: 20130618
  5. INEXIUM [Concomitant]
     Dosage: UNK
     Route: 042
     Dates: start: 20130605, end: 20130618
  6. LYRICA [Concomitant]
     Indication: SEPTIC SHOCK
     Dosage: UNK
     Route: 048
     Dates: start: 20130606, end: 20130618

REACTIONS (1)
  - Acute generalised exanthematous pustulosis [Recovering/Resolving]
